FAERS Safety Report 10513063 (Version 1)
Quarter: 2014Q4

REPORT INFORMATION
  Report Type: Report from Study
  Country: IE (occurrence: IE)
  Receive Date: 20141013
  Receipt Date: 20141013
  Transmission Date: 20150528
  Serious: Yes (Death)
  Sender: FDA-Public Use
  Company Number: IE-AMGEN-IRLSL2014078402

PATIENT
  Age: 60 Year
  Sex: Female

DRUGS (6)
  1. NEULASTA [Suspect]
     Active Substance: PEGFILGRASTIM
     Indication: BREAST CANCER
     Dosage: 6MG/0.6ML, EVERY 3 WEEKS
     Route: 058
     Dates: start: 20110401
  2. EXPUTEX [Concomitant]
     Dosage: UNK
  3. HERCEPTIN [Concomitant]
     Active Substance: TRASTUZUMAB
     Dosage: UNK
  4. ZOMETA [Concomitant]
     Active Substance: ZOLEDRONIC ACID
     Dosage: 6/12
  5. DEXAMETHASONE. [Concomitant]
     Active Substance: DEXAMETHASONE
     Dosage: X 2/7
  6. EMEND [Concomitant]
     Active Substance: APREPITANT
     Dosage: X 3/7

REACTIONS (1)
  - Death [Fatal]

NARRATIVE: CASE EVENT DATE: 20140117
